FAERS Safety Report 8877681 (Version 2)
Quarter: 2013Q1

REPORT INFORMATION
  Report Type: Spontaneous
  Country: JP (occurrence: None)
  Receive Date: 20121025
  Receipt Date: 20121113
  Transmission Date: 20140127
  Serious: Yes (Other)
  Sender: FDA-Public Use
  Company Number: 2012SP003354

PATIENT
  Age: 70 Year
  Sex: Female

DRUGS (7)
  1. FLUOROURACIL (FLUOROURACIL) [Suspect]
     Indication: BREAST CANCER
     Dates: start: 20100701
  2. FARMORUBICIN [Suspect]
     Indication: BREAST CANCER
     Dates: start: 20100701
  3. CYCLOPHOSPHAMIDE (CYCLOPHOSPHAMIDE) [Suspect]
     Indication: BREAST CANCER
     Dates: start: 20100701
  4. PERICIAZINE [Concomitant]
  5. TIMIPERONE [Suspect]
  6. BIPERIDEN [Concomitant]
  7. UNSPECIFIED INGREDIENT [Concomitant]

REACTIONS (1)
  - Febrile neutropenia [None]
